FAERS Safety Report 5874456-1 (Version None)
Quarter: 2008Q3

REPORT INFORMATION
  Report Type: 
  Country: None (occurrence: None)
  Receive Date: 20080908
  Receipt Date: 20080827
  Transmission Date: 20090109
  Serious: Yes (Hospitalization)
  Sender: FDA-Public Use
  Company Number: FR-PFIZER INC-2008072302

PATIENT
  Sex: Male

DRUGS (9)
  1. TRIFLUCAN [Suspect]
     Dosage: TEXT:200 MG
     Dates: start: 20080503, end: 20080604
  2. MODOPAR [Suspect]
     Dosage: TEXT:62.5 CAPSULE (50 MG/12.5 MG)  MG/12.5 MG)
     Dates: start: 20080523, end: 20080604
  3. KEPPRA [Suspect]
     Dosage: TEXT:500 MG COATED TABLET
     Dates: end: 20080604
  4. MOPRAL [Suspect]
     Dosage: TEXT:40 MG LYOPHILISATE FOR INFUSION
     Route: 042
     Dates: start: 20080505, end: 20080604
  5. ATARAX [Concomitant]
  6. MALOCIDE [Concomitant]
  7. ABACAVIR SULFATE LAMIVUDINE AND ZIDOVUDINE [Concomitant]
  8. PREZISTA [Concomitant]
  9. SULFADIAZINE [Concomitant]

REACTIONS (1)
  - BONE MARROW FAILURE [None]
